FAERS Safety Report 19857083 (Version 2)
Quarter: 2021Q3

REPORT INFORMATION
  Report Type: Spontaneous
  Country: JP (occurrence: JP)
  Receive Date: 20210920
  Receipt Date: 20210921
  Transmission Date: 20211014
  Serious: Yes (Other)
  Sender: FDA-Public Use
  Company Number: JP-VALIDUS PHARMACEUTICALS LLC-JP-VDP-2021-001531

PATIENT
  Sex: Male

DRUGS (2)
  1. CEFOTAXIME SODIUM [Suspect]
     Active Substance: CEFOTAXIME SODIUM
     Indication: PYELONEPHRITIS
     Dosage: 1000 MILLIGRAM
     Route: 065
     Dates: start: 20210805, end: 20210813
  2. VICCILLIN #1 [Suspect]
     Active Substance: AMPICILLIN SODIUM
     Dosage: UNK
     Dates: start: 20210807, end: 20210810

REACTIONS (1)
  - Hyperkalaemia [Recovering/Resolving]

NARRATIVE: CASE EVENT DATE: 20210810
